FAERS Safety Report 9258852 (Version 4)
Quarter: 2013Q3

REPORT INFORMATION
  Report Type: Spontaneous
  Country: US (occurrence: US)
  Receive Date: 20130426
  Receipt Date: 20130918
  Transmission Date: 20140515
  Serious: Yes (Hospitalization)
  Sender: FDA-Public Use
  Company Number: US-GLAXOSMITHKLINE-A1021345A

PATIENT
  Age: 45 Year
  Sex: Male

DRUGS (2)
  1. LAMICTAL XR [Suspect]
     Indication: EPILEPSY
     Dosage: 200MG FOUR TIMES PER DAY
     Dates: start: 20111217
  2. UNSPECIFIED MEDICATION [Suspect]
     Indication: DIAGNOSTIC PROCEDURE

REACTIONS (4)
  - Epilepsy [Unknown]
  - Diagnostic procedure [Unknown]
  - Malaise [Unknown]
  - Hospitalisation [Unknown]
